FAERS Safety Report 20485722 (Version 1)
Quarter: 2022Q1

REPORT INFORMATION
  Report Type: Spontaneous
  Country: BG (occurrence: BG)
  Receive Date: 20220217
  Receipt Date: 20220217
  Transmission Date: 20220424
  Serious: Yes (Life-Threatening, Hospitalization, Other)
  Sender: FDA-Public Use
  Company Number: BG-AMGEN-BGRSP2022024089

PATIENT
  Age: 63 Year
  Sex: Female

DRUGS (5)
  1. XGEVA [Suspect]
     Active Substance: DENOSUMAB
     Indication: Breast cancer metastatic
     Dosage: 120 MILLIGRAM, Q4WK
     Route: 058
  2. KISQALI [Concomitant]
     Active Substance: RIBOCICLIB
     Dosage: 600 MILLIGRAM, QD (THREE TABLETS FOR 21 DAYS)
     Route: 065
  3. KISQALI [Concomitant]
     Active Substance: RIBOCICLIB
     Dosage: 400 MILLIGRAM, QD (TWO TABLETS)
  4. FULVESTRANT [Concomitant]
     Active Substance: FULVESTRANT
     Dosage: 500 MILLIGRAM, QMO (ON DAYS ONE, 15 AND 29)
     Route: 030
  5. FULVESTRANT [Concomitant]
     Active Substance: FULVESTRANT
     Dosage: 500 MILLIGRAM, QMO
     Route: 030

REACTIONS (6)
  - Neutropenia [Recovering/Resolving]
  - Asthenia [Unknown]
  - Cough [Unknown]
  - Diarrhoea [Unknown]
  - Therapy partial responder [Unknown]
  - Condition aggravated [Unknown]
